FAERS Safety Report 6239194-4 (Version None)
Quarter: 2009Q2

REPORT INFORMATION
  Report Type: 
  Country: None (occurrence: None)
  Receive Date: 20090622
  Receipt Date: 20090615
  Transmission Date: 20091009
  Serious: Yes (Life-Threatening, Hospitalization, Other)
  Sender: FDA-Public Use
  Company Number: GB-TEVA-149286ISR

PATIENT
  Age: 7 Year
  Sex: Male
  Weight: 25 kg

DRUGS (1)
  1. FLUOXETINE HCL [Suspect]
     Indication: DEPRESSION
     Dates: start: 20050501, end: 20060901

REACTIONS (3)
  - ACUTE MYELOID LEUKAEMIA [None]
  - CONTUSION [None]
  - SUICIDE ATTEMPT [None]
